FAERS Safety Report 15660333 (Version 1)
Quarter: 2018Q4

REPORT INFORMATION
  Report Type: Report from Study
  Country: CA (occurrence: CA)
  Receive Date: 20181127
  Receipt Date: 20181127
  Transmission Date: 20190205
  Serious: Yes (Other)
  Sender: FDA-Public Use
  Company Number: CA-GLAXOSMITHKLINE-CA2018GSK206571

PATIENT
  Age: 64 Year
  Sex: Female

DRUGS (1)
  1. MEPOLIZUMAB [Suspect]
     Active Substance: MEPOLIZUMAB
     Indication: ASTHMA
     Dosage: 100 MG, Z(ONCE MONTHLY)
     Route: 042

REACTIONS (10)
  - Myalgia [Unknown]
  - Respiratory tract congestion [Unknown]
  - Malaise [Unknown]
  - Arthralgia [Unknown]
  - Heart rate increased [Unknown]
  - Condition aggravated [Unknown]
  - Pyrexia [Unknown]
  - Sinus congestion [Unknown]
  - Body temperature increased [Unknown]
  - Respiratory tract infection [Unknown]

NARRATIVE: CASE EVENT DATE: 20181106
